FAERS Safety Report 6616579-5 (Version None)
Quarter: 2010Q1

REPORT INFORMATION
  Report Type: 
  Country: None (occurrence: None)
  Receive Date: 20100305
  Receipt Date: 20100224
  Transmission Date: 20100710
  Serious: Yes (Other)
  Sender: FDA-Public Use
  Company Number: CN-PFIZER INC-2010023579

PATIENT

DRUGS (2)
  1. VFEND [Suspect]
     Indication: PYREXIA
     Dosage: UNK
  2. ZYVOX [Suspect]
     Indication: STAPHYLOCOCCAL INFECTION
     Dosage: UNK

REACTIONS (2)
  - BLINDNESS [None]
  - STAPHYLOCOCCAL INFECTION [None]
